FAERS Safety Report 10017946 (Version 1)
Quarter: 2014Q1

REPORT INFORMATION
  Report Type: Spontaneous
  Country: US (occurrence: US)
  Receive Date: 20140318
  Receipt Date: 20140318
  Transmission Date: 20141002
  Serious: No
  Sender: FDA-Public Use
  Company Number: US-BRISTOL-MYERS SQUIBB COMPANY-18875823

PATIENT
  Age: 70 Year
  Sex: Female

DRUGS (6)
  1. ERBITUX [Suspect]
     Dosage: FIRST DOSE-DOUBLE DOSE?NO OF DOSES-3
  2. IRINOTECAN [Concomitant]
  3. METOPROLOL [Concomitant]
  4. LORAZEPAM [Concomitant]
  5. SERTRALINE [Concomitant]
  6. GABAPENTIN [Concomitant]

REACTIONS (1)
  - Urticaria [Recovered/Resolved]
